FAERS Safety Report 10912112 (Version 1)
Quarter: 2015Q1

REPORT INFORMATION
  Report Type: Spontaneous
  Country: US (occurrence: None)
  Receive Date: 20150128
  Receipt Date: 20150128
  Transmission Date: 20150721
  Serious: No
  Sender: FDA-Public Use
  Company Number: 2014TUS010173

PATIENT
  Sex: Female

DRUGS (2)
  1. BRINTELLIX [Suspect]
     Active Substance: VORTIOXETINE HYDROBROMIDE
     Indication: PRODUCT USED FOR UNKNOWN INDICATION
  2. HORMONE REPLACEMENT THERAPY (HORMONES AND RELATED AGENTS) [Suspect]
     Active Substance: UNSPECIFIED INGREDIENT
     Indication: MENOPAUSE

REACTIONS (1)
  - Emotional disorder [None]
